FAERS Safety Report 17346787 (Version 1)
Quarter: 2020Q1

REPORT INFORMATION
  Report Type: Spontaneous
  Country: BR (occurrence: BR)
  Receive Date: 20200129
  Receipt Date: 20200129
  Transmission Date: 20200409
  Serious: No
  Sender: FDA-Public Use
  Company Number: BR-EXELIXIS-CABO-19021769

PATIENT
  Age: 56 Year
  Sex: Male

DRUGS (4)
  1. CABOMETYX [Suspect]
     Active Substance: CABOZANTINIB S-MALATE
     Indication: CLEAR CELL RENAL CELL CARCINOMA
     Dosage: 60 MG, QD (DURING THE AFTERNOON)
     Route: 048
     Dates: start: 20190501
  2. CITALOPRAM [Concomitant]
     Active Substance: CITALOPRAM HYDROBROMIDE
     Indication: ANXIETY
     Dosage: UNK
  3. CABOMETYX [Suspect]
     Active Substance: CABOZANTINIB S-MALATE
     Dosage: 60 MG (EACH DAY IN THE AFTERNOON AFTER 2 HOURS IN FASTING,DURING 6 CONTINUOUS DAY AND PAUSING 1 DAY)
     Route: 048
  4. PRELONE [Concomitant]
     Active Substance: PREDNISOLONE
     Indication: PHARYNGITIS
     Dosage: UNK

REACTIONS (7)
  - Blister [Unknown]
  - Wound [Recovered/Resolved]
  - Dysphonia [Recovered/Resolved]
  - Candida infection [Recovered/Resolved]
  - Headache [Recovered/Resolved]
  - Wound complication [Not Recovered/Not Resolved]
  - Abdominal pain upper [Not Recovered/Not Resolved]

NARRATIVE: CASE EVENT DATE: 2019
